FAERS Safety Report 10927123 (Version 1)
Quarter: 2015Q1

REPORT INFORMATION
  Report Type: Spontaneous
  Country: US (occurrence: None)
  Receive Date: 20150316
  Receipt Date: 20150316
  Transmission Date: 20150721
  Serious: Yes (Life-Threatening, Other)
  Sender: FDA-Public Use
  Company Number: FK201501189

PATIENT

DRUGS (4)
  1. HEPARIN [Suspect]
     Active Substance: HEPARIN SODIUM
     Indication: PRODUCT USED FOR UNKNOWN INDICATION
  2. FONDAPARINUX [Concomitant]
     Active Substance: FONDAPARINUX
  3. ARGATROBAN. [Concomitant]
     Active Substance: ARGATROBAN
  4. LOW MOLECULAR HEPARIN (DALTEPARIN SODIUM) [Suspect]
     Active Substance: DALTEPARIN SODIUM
     Indication: PRODUCT USED FOR UNKNOWN INDICATION

REACTIONS (4)
  - Heparin-induced thrombocytopenia [None]
  - Arterial thrombosis [None]
  - Venous thrombosis [None]
  - Hand amputation [None]
